FAERS Safety Report 14330921 (Version 2)
Quarter: 2018Q1

REPORT INFORMATION
  Report Type: Spontaneous
  Country: FI (occurrence: FI)
  Receive Date: 20171228
  Receipt Date: 20180104
  Transmission Date: 20180509
  Serious: Yes (Death, Other)
  Sender: FDA-Public Use
  Company Number: FI-ORION CORPORATION ORION PHARMA-TREX2017-4237

PATIENT
  Age: 74 Year
  Sex: Male

DRUGS (1)
  1. METHOTREXATE. [Suspect]
     Active Substance: METHOTREXATE
     Dosage: ON TUESDAYS
     Route: 065

REACTIONS (5)
  - Sepsis [Fatal]
  - Neutropenia [Unknown]
  - Anaemia [Unknown]
  - General physical health deterioration [Unknown]
  - Drug prescribing error [Unknown]
